APPROVED DRUG PRODUCT: VIZIMPRO
Active Ingredient: DACOMITINIB
Strength: 45MG
Dosage Form/Route: TABLET;ORAL
Application: N211288 | Product #003
Applicant: PFIZER INC
Approved: Sep 27, 2018 | RLD: Yes | RS: Yes | Type: RX

PATENTS:
Patent 10603314 | Expires: Feb 2, 2026
Patent 10596162 | Expires: Feb 2, 2026
Patent 7772243 | Expires: Sep 27, 2032